FAERS Safety Report 9049864 (Version 2)
Quarter: 2013Q1

REPORT INFORMATION
  Report Type: Spontaneous
  Country: BR (occurrence: BR)
  Receive Date: 20130205
  Receipt Date: 20130308
  Transmission Date: 20140127
  Serious: Yes (Death, Hospitalization, Other)
  Sender: FDA-Public Use
  Company Number: BR-AMGEN-BRASP2013007728

PATIENT
  Age: 71 Year
  Sex: Male

DRUGS (6)
  1. ENBREL [Suspect]
     Indication: RHEUMATOID ARTHRITIS
     Dosage: 50 MG, ONCE WEEKLY
     Route: 058
     Dates: start: 201203
  2. ENBREL [Suspect]
     Dosage: 50 MG, UNK
     Route: 058
  3. METHOTREXATE [Concomitant]
     Dosage: UNK
     Dates: end: 201203
  4. PREDNISONE [Concomitant]
     Dosage: 10 MG, UNSPECIFIED FREQUENCY
  5. OMEPRAZOL                          /00661201/ [Concomitant]
     Dosage: UNK
  6. FOLIC ACID [Concomitant]
     Dosage: UNK

REACTIONS (5)
  - Cholelithiasis [Unknown]
  - Infarction [Fatal]
  - Feeling abnormal [Unknown]
  - Gastritis [Unknown]
  - Pneumonia [Recovered/Resolved]
